FAERS Safety Report 19074176 (Version 1)
Quarter: 2021Q1

REPORT INFORMATION
  Report Type: Spontaneous
  Country: JP (occurrence: JP)
  Receive Date: 20210330
  Receipt Date: 20210330
  Transmission Date: 20210420
  Serious: Yes (Hospitalization, Other)
  Sender: FDA-Public Use
  Company Number: JP-BRISTOL-MYERS SQUIBB COMPANY-BMS-2021-030292

PATIENT
  Age: 83 Year
  Sex: Female

DRUGS (3)
  1. MEPOLIZUMAB(GENETICAL RECOMBINATION) [Concomitant]
     Indication: CHRONIC OBSTRUCTIVE PULMONARY DISEASE
     Dosage: UNK
     Route: 065
     Dates: start: 201907
  2. OPDIVO [Suspect]
     Active Substance: NIVOLUMAB
     Indication: NON-SMALL CELL LUNG CANCER RECURRENT
     Dosage: UNK
     Route: 041
     Dates: start: 201912
  3. MEPOLIZUMAB(GENETICAL RECOMBINATION) [Concomitant]
     Indication: ASTHMA

REACTIONS (2)
  - Large intestinal stenosis [Unknown]
  - Ileus [Unknown]

NARRATIVE: CASE EVENT DATE: 201912
